FAERS Safety Report 6730527-9 (Version None)
Quarter: 2010Q2

REPORT INFORMATION
  Report Type: 
  Country: None (occurrence: None)
  Receive Date: 20100514
  Receipt Date: 20100225
  Transmission Date: 20101027
  Serious: Yes (Hospitalization, Other)
  Sender: FDA-Public Use
  Company Number: 2006-03325

PATIENT
  Age: 56 Year
  Sex: Female
  Weight: 47 kg

DRUGS (7)
  1. VELCADE [Suspect]
     Indication: T-CELL LYMPHOMA
     Dosage: 2.40MG, INTRAVENOUS
     Route: 042
     Dates: start: 20061201, end: 20061219
  2. DOXORUBICIN HCL [Suspect]
     Indication: T-CELL LYMPHOMA
     Dosage: 118.50MG, INTRAVENOUS
     Route: 042
  3. CYCLOPHOSPHAMIDE [Suspect]
     Indication: T-CELL LYMPHOMA
     Dosage: 1896.00MG INTRAVENOUS
     Route: 042
     Dates: start: 20061202, end: 20061215
  4. ELDISINE [Suspect]
     Indication: T-CELL LYMPHOMA
     Dosage: 3.20, INTRAVENOUS
     Route: 042
     Dates: start: 20061201, end: 20061219
  5. GRANOCYTE 13-34 (LENOGRASTIM) INJECTION [Suspect]
     Indication: T-CELL LYMPHOMA
     Dosage: 238 MIU
     Dates: start: 20061206, end: 20061213
  6. BLEOMYCIN (BELOMYCIN) INJECTION [Suspect]
     Indication: T-CELL LYMPHOMA
     Dosage: 10.00 MG, INTRAVENOUS
     Route: 042
     Dates: start: 20061201, end: 20061219
  7. METHOTREXATE [Suspect]
     Indication: T-CELL LYMPHOMA
     Dosage: 15.00, INTRATHECAL
     Route: 037
     Dates: start: 20061202, end: 20061219

REACTIONS (6)
  - DYSPHAGIA [None]
  - FEBRILE NEUTROPENIA [None]
  - HIATUS HERNIA [None]
  - OESOPHAGEAL CANDIDIASIS [None]
  - ORAL CANDIDIASIS [None]
  - PANCYTOPENIA [None]
